FAERS Safety Report 14955938 (Version 2)
Quarter: 2019Q2

REPORT INFORMATION
  Report Type: Other
  Country: ES (occurrence: ES)
  Receive Date: 20180531
  Receipt Date: 20190606
  Transmission Date: 20190711
  Serious: Yes (Hospitalization, Other)
  Sender: FDA-Public Use
  Company Number: ES-MACLEODS PHARMACEUTICALS US LTD-MAC2018013911

PATIENT

DRUGS (8)
  1. OLANZAPINE. [Suspect]
     Active Substance: OLANZAPINE
     Indication: PRODUCT USED FOR UNKNOWN INDICATION
     Dosage: 2.5 MILLIGRAM, QD
     Route: 065
  2. SPIRIVA [Suspect]
     Active Substance: TIOTROPIUM BROMIDE MONOHYDRATE
     Indication: PRODUCT USED FOR UNKNOWN INDICATION
     Dosage: 18 MICROGRAM, QD
     Route: 065
  3. CLONAZEPAM. [Suspect]
     Active Substance: CLONAZEPAM
     Dosage: UNK
  4. QUETIAPINE 25MG TABLET [Suspect]
     Active Substance: QUETIAPINE
     Indication: RESTLESSNESS
     Dosage: 25 MILLIGRAM, 12.5 MG OF FIXED FORM IN THE DINNERS
     Route: 048
  5. OLANZAPINE. [Suspect]
     Active Substance: OLANZAPINE
     Dosage: 5 MILLIGRAM, QD
     Route: 065
  6. DONEPEZIL. [Suspect]
     Active Substance: DONEPEZIL
     Indication: PRODUCT USED FOR UNKNOWN INDICATION
     Dosage: 10 MILLIGRAM, QD
     Route: 065
  7. FLOMAX [Suspect]
     Active Substance: TAMSULOSIN HYDROCHLORIDE
     Indication: PRODUCT USED FOR UNKNOWN INDICATION
     Dosage: 0.4 MILLIGRAM
     Route: 065
  8. CLONAZEPAM. [Suspect]
     Active Substance: CLONAZEPAM
     Indication: PRODUCT USED FOR UNKNOWN INDICATION
     Dosage: 0.13 MILLIGRAM, QD
     Route: 065

REACTIONS (12)
  - Acute kidney injury [Recovered/Resolved]
  - Myoclonus [Recovered/Resolved]
  - Pyrexia [Recovered/Resolved]
  - Tremor [Recovered/Resolved]
  - Depressed level of consciousness [Recovered/Resolved]
  - Neuroleptic malignant syndrome [Recovered/Resolved]
  - Hyperhidrosis [Recovered/Resolved]
  - Respiratory tract infection [Recovered/Resolved]
  - Product use in unapproved indication [Unknown]
  - Respiratory failure [Recovered/Resolved]
  - Muscle rigidity [Recovered/Resolved]
  - Off label use [Unknown]
